FAERS Safety Report 6794026-0 (Version None)
Quarter: 2010Q2

REPORT INFORMATION
  Report Type: 
  Country: None (occurrence: None)
  Receive Date: 20100624
  Receipt Date: 20061013
  Transmission Date: 20101027
  Serious: No
  Sender: FDA-Public Use
  Company Number: US-PFIZER INC-23100333

PATIENT
  Sex: Male

DRUGS (5)
  1. ARGATROBAN [Suspect]
     Dosage: INTERVAL:  ONCE
     Dates: start: 20060612, end: 20060612
  2. ARGATROBAN [Suspect]
  3. PROGRESS [Concomitant]
  4. CELLCEPT [Concomitant]
  5. ERYTHROMYCIN [Concomitant]
     Indication: ORGAN TRANSPLANT

REACTIONS (1)
  - OPERATIVE HAEMORRHAGE [None]
